FAERS Safety Report 8060758-X (Version None)
Quarter: 2012Q1

REPORT INFORMATION
  Report Type: 
  Country: None (occurrence: None)
  Receive Date: 20120120
  Receipt Date: 20110106
  Transmission Date: 20120608
  Serious: No
  Sender: FDA-Public Use
  Company Number: US-ALLERGAN-1100164US

PATIENT
  Age: 85 Year
  Sex: Female

DRUGS (1)
  1. RESTASIS [Suspect]
     Indication: DRY EYE
     Dosage: 1 GTT, BID
     Route: 047

REACTIONS (4)
  - SWELLING FACE [None]
  - ERYTHEMA OF EYELID [None]
  - EYELID OEDEMA [None]
  - EYE PRURITUS [None]
